FAERS Safety Report 12952651 (Version 1)
Quarter: 2016Q4

REPORT INFORMATION
  Report Type: Spontaneous
  Country: US (occurrence: US)
  Receive Date: 20161117
  Receipt Date: 20161117
  Transmission Date: 20170207
  Serious: No
  Sender: FDA-Public Use
  Company Number: US-SA-2016SA159366

PATIENT
  Sex: Female

DRUGS (3)
  1. TOUJEO [Suspect]
     Active Substance: INSULIN GLARGINE
     Indication: DIABETES MELLITUS
     Route: 065
  2. LEVEMIR [Concomitant]
     Active Substance: INSULIN DETEMIR
  3. SOLOSTAR [Concomitant]
     Active Substance: DEVICE
     Indication: DIABETES MELLITUS

REACTIONS (5)
  - Dyspnoea [Recovered/Resolved]
  - Pruritus [Recovered/Resolved]
  - Hyperhidrosis [Recovered/Resolved]
  - Palpitations [Recovered/Resolved]
  - Weight increased [Recovered/Resolved]

NARRATIVE: CASE EVENT DATE: 20160818
